FAERS Safety Report 25395006 (Version 1)
Quarter: 2025Q2

REPORT INFORMATION
  Report Type: Spontaneous
  Country: JP (occurrence: JP)
  Receive Date: 20250604
  Receipt Date: 20250604
  Transmission Date: 20250716
  Serious: Yes (Other)
  Sender: RANBAXY
  Company Number: JP-SUN PHARMACEUTICAL INDUSTRIES INC-2025RR-510213

PATIENT
  Age: 60 Year

DRUGS (2)
  1. EMPAGLIFLOZIN [Suspect]
     Active Substance: EMPAGLIFLOZIN
     Indication: Anaemia
     Route: 065
  2. CARVEDILOL [Suspect]
     Active Substance: CARVEDILOL
     Indication: Cardiac failure
     Dosage: 1.25 MILLIGRAM, DAILY
     Route: 065

REACTIONS (1)
  - Sinus node dysfunction [Recovered/Resolved]
